FAERS Safety Report 9069961 (Version 2)
Quarter: 2013Q2

REPORT INFORMATION
  Report Type: Spontaneous
  Country: IL (occurrence: IL)
  Receive Date: 20130215
  Receipt Date: 20130401
  Transmission Date: 20140414
  Serious: Yes (Hospitalization, Other)
  Sender: FDA-Public Use
  Company Number: IL-ASTRAZENECA-2013SE09703

PATIENT
  Age: 4 Month
  Sex: Female
  Weight: 1.7 kg

DRUGS (8)
  1. SYNAGIS [Suspect]
     Indication: ANTIVIRAL PROPHYLAXIS
     Route: 030
     Dates: start: 20121112
  2. SYNAGIS [Suspect]
     Indication: ANTIVIRAL PROPHYLAXIS
     Route: 030
     Dates: start: 20121210
  3. SYNAGIS [Suspect]
     Indication: ANTIVIRAL PROPHYLAXIS
     Route: 030
     Dates: start: 20121224
  4. SYNAGIS [Suspect]
     Indication: ANTIVIRAL PROPHYLAXIS
     Route: 030
     Dates: start: 20130124, end: 20130124
  5. SYNAGIS [Suspect]
     Indication: ANTIVIRAL PROPHYLAXIS
     Route: 030
     Dates: start: 20130224
  6. FUSID [Concomitant]
     Indication: HEART DISEASE CONGENITAL
  7. ALDACTONE [Concomitant]
     Indication: HEART DISEASE CONGENITAL
  8. VIAGRA [Concomitant]
     Indication: PULMONARY HYPERTENSION
     Dosage: ROUTE PZ (10 MG,4 IN 1 D)

REACTIONS (4)
  - Weight gain poor [Recovering/Resolving]
  - Acute respiratory failure [Recovered/Resolved]
  - Pulmonary hypertension [Recovering/Resolving]
  - Respiratory syncytial virus infection [Recovering/Resolving]
